FAERS Safety Report 6722329-4 (Version None)
Quarter: 2010Q2

REPORT INFORMATION
  Report Type: 
  Country: None (occurrence: None)
  Receive Date: 20100512
  Receipt Date: 20100503
  Transmission Date: 20101027
  Serious: Yes (Death, Hospitalization, Other)
  Sender: FDA-Public Use
  Company Number: PT-ROCHE-701138

PATIENT
  Age: 62 Year
  Sex: Male

DRUGS (4)
  1. MYCOPHENOLATE MOFETIL [Suspect]
     Dosage: STOP DATE BETWEEN SEP 2007 AND NOV 2007.
     Route: 065
     Dates: start: 20070901, end: 20070901
  2. BASILIXIMAB [Suspect]
     Dosage: STOP DATE ESTIMATED.
     Route: 065
     Dates: start: 20070901, end: 20070901
  3. CYCLOSPORINE [Suspect]
     Route: 065
     Dates: start: 20070901
  4. PREDNISOLONE [Suspect]
     Route: 065
     Dates: start: 20070901

REACTIONS (5)
  - COCCIDIOIDES ENCEPHALITIS [None]
  - HAEMATURIA [None]
  - LEUKOPENIA [None]
  - PYURIA [None]
  - TRANSPLANT REJECTION [None]
